FAERS Safety Report 7067698-3 (Version None)
Quarter: 2010Q4

REPORT INFORMATION
  Report Type: 
  Country: None (occurrence: None)
  Receive Date: 20101028
  Receipt Date: 20101015
  Transmission Date: 20110411
  Serious: Yes (Other)
  Sender: FDA-Public Use
  Company Number: PHFR2010GB01367

PATIENT
  Sex: Male
  Weight: 100.5 kg

DRUGS (5)
  1. CLOZARIL [Suspect]
     Indication: SCHIZOPHRENIA
     Dosage: 6.25 MG
     Route: 048
     Dates: start: 20100715, end: 20100718
  2. CLOZARIL [Suspect]
     Dosage: 6.25 MG, TID
  3. CLOZARIL [Suspect]
     Dosage: 12.5 MG, UNK
  4. AMISULPRIDE [Concomitant]
     Indication: PSYCHOTIC DISORDER
     Dosage: 800 MG / DAILY
     Route: 048
     Dates: start: 20100427
  5. ANTIPSYCHOTICS [Concomitant]

REACTIONS (5)
  - ALANINE AMINOTRANSFERASE INCREASED [None]
  - GAMMA-GLUTAMYLTRANSFERASE INCREASED [None]
  - HEPATIC ENZYME INCREASED [None]
  - HEPATIC STEATOSIS [None]
  - WEIGHT INCREASED [None]
